FAERS Safety Report 18767523 (Version 2)
Quarter: 2021Q1

REPORT INFORMATION
  Report Type: Spontaneous
  Country: CN (occurrence: CN)
  Receive Date: 20210121
  Receipt Date: 20210218
  Transmission Date: 20210419
  Serious: No
  Sender: FDA-Public Use
  Company Number: CN-LUPIN PHARMACEUTICALS INC.-2021-00350

PATIENT
  Age: 35 Year
  Sex: Female

DRUGS (9)
  1. MORPHINE [Suspect]
     Active Substance: MORPHINE
     Indication: ANALGESIC THERAPY
     Dosage: 7 MILLIGRAM,VIA AN ANALGESIC PUMP,INJECTION
     Route: 065
     Dates: start: 20200519, end: 20200521
  2. CEFOPERAZONE SODIUM AND TAZOBACTAM SODIUM [Suspect]
     Active Substance: CEFOPERAZONE\TAZOBACTAM SODIUM
     Indication: DRUG THERAPY
     Dosage: 3 GRAM
     Route: 042
     Dates: start: 20200519, end: 20200521
  3. CARBOPROST TROMETHAMINE [Concomitant]
     Active Substance: CARBOPROST TROMETHAMINE
     Indication: HAEMORRHAGE
     Dosage: 250 MICROGRAM, SINGLE DOSE
     Route: 030
     Dates: start: 20200519, end: 20200519
  4. OXYTOCIN. [Concomitant]
     Active Substance: OXYTOCIN
     Indication: UTERINE CONTRACTIONS DURING PREGNANCY
     Dosage: INJECTION SOLUTION
     Route: 042
     Dates: start: 20200519, end: 20200521
  5. METRONIDAZOLE. [Suspect]
     Active Substance: METRONIDAZOLE
     Indication: DRUG THERAPY
     Dosage: 0.5 GRAM,CONTINUED TO RECEIVE POST CAESAREAN SECTION
     Route: 065
     Dates: start: 20200519, end: 20200521
  6. MORPHINE [Suspect]
     Active Substance: MORPHINE
     Dosage: 2 GRAM,AT THE END OF THE OPERATION (SINGLE DOSE)
     Route: 008
  7. POLYSACCHARIDE?IRON COMPLEX [Concomitant]
     Active Substance: FERRIC POLYSACCHARIDE COMPLEX
     Indication: MINERAL SUPPLEMENTATION
     Dosage: 0.15 GRAM, BID
     Route: 048
     Dates: start: 20200520
  8. VITAMIN C ACID [Concomitant]
     Active Substance: ASCORBIC ACID
     Indication: NUTRITIONAL SUPPLEMENTATION
     Dosage: INJECTION SOLUTION
     Route: 065
     Dates: start: 20200519
  9. MOTHERWORT [Concomitant]
     Indication: DRUG THERAPY
     Dosage: 0.4 GRAM, BID
     Route: 065
     Dates: start: 20200520

REACTIONS (3)
  - Pruritus [Recovered/Resolved]
  - Exposure during pregnancy [Unknown]
  - Rash [Recovered/Resolved]

NARRATIVE: CASE EVENT DATE: 20200519
